FAERS Safety Report 5512181-7 (Version None)
Quarter: 2007Q4

REPORT INFORMATION
  Report Type: 
  Country: None (occurrence: None)
  Receive Date: 20071112
  Receipt Date: 20071105
  Transmission Date: 20080405
  Serious: Yes (Life-Threatening, Hospitalization)
  Sender: FDA-Public Use
  Company Number: PHBS2007SE18429

PATIENT
  Age: 31 Year
  Sex: Female

DRUGS (2)
  1. FLUOXETINE [Concomitant]
  2. TEGRETOL [Suspect]
     Indication: DEPRESSION
     Dosage: 200 400MG TABLETS, ONCE/SINGLE
     Route: 048
     Dates: start: 20071021, end: 20071021

REACTIONS (2)
  - INTENTIONAL OVERDOSE [None]
  - SUICIDE ATTEMPT [None]
